FAERS Safety Report 8414705-9 (Version None)
Quarter: 2012Q2

REPORT INFORMATION
  Report Type: 
  Country: None (occurrence: None)
  Receive Date: 20120605
  Receipt Date: 20120530
  Transmission Date: 20120825
  Serious: Yes (Other)
  Sender: FDA-Public Use
  Company Number: JP-MERCK-1206USA00155

PATIENT
  Age: 59 Year
  Sex: Male

DRUGS (7)
  1. NINJIN-TO [Concomitant]
     Route: 065
  2. LOPEMIN [Concomitant]
     Route: 065
  3. ZANTAC [Concomitant]
     Route: 065
  4. AMARYL [Suspect]
     Indication: TYPE 2 DIABETES MELLITUS
     Route: 048
     Dates: end: 20120401
  5. JANUVIA [Suspect]
     Indication: TYPE 2 DIABETES MELLITUS
     Route: 048
     Dates: end: 20120507
  6. ACTOS [Concomitant]
     Route: 065
     Dates: end: 20120401
  7. AMARYL [Suspect]
     Route: 048
     Dates: start: 20120401, end: 20120507

REACTIONS (2)
  - INFECTION [None]
  - HYPOGLYCAEMIA [None]
